FAERS Safety Report 10712056 (Version 1)
Quarter: 2015Q1

REPORT INFORMATION
  Report Type: Report from Study
  Country: CZ (occurrence: CZ)
  Receive Date: 20150114
  Receipt Date: 20150114
  Transmission Date: 20150721
  Serious: Yes (Death)
  Sender: FDA-Public Use
  Company Number: CZ-ABBVIE-09P-217-0796161-00

PATIENT
  Age: 70 Year
  Sex: Male

DRUGS (8)
  1. DIAPREL [Concomitant]
     Active Substance: GLICLAZIDE
     Indication: DIABETES MELLITUS
     Dosage: DAILY DOSE: 15 MILLIGRAM(S)
     Route: 048
     Dates: end: 20090930
  2. ACETYLSALICYLIC ACID [Concomitant]
     Active Substance: ASPIRIN
     Indication: CEREBROVASCULAR ACCIDENT PROPHYLAXIS
     Dosage: DAILY DOSE: 100 MILLIGRAM(S)
     Route: 048
     Dates: end: 20090930
  3. MOTILIUM [Concomitant]
     Active Substance: DOMPERIDONE
     Indication: CONSTIPATION
     Dosage: DAILY DOSE: 30 MILLIGRAM(S)
     Route: 048
     Dates: end: 20090930
  4. TARKA [Concomitant]
     Active Substance: TRANDOLAPRIL\VERAPAMIL HYDROCHLORIDE
     Indication: HYPERTENSION
     Dosage: DAILY DOSE: 180 MILLIGRAM(S)
     Route: 048
     Dates: end: 20090930
  5. SINEMET [Concomitant]
     Active Substance: CARBIDOPA\LEVODOPA
     Indication: PARKINSON^S DISEASE
     Dosage: DAILY DOSE: 250 MILLIGRAM(S)
     Route: 048
     Dates: end: 20090929
  6. L DOPA [Concomitant]
     Active Substance: LEVODOPA
     Indication: PARKINSON^S DISEASE
     Dosage: SINCE 61 YEARS OF AGE
     Route: 065
  7. DUODOPA [Suspect]
     Active Substance: CARBIDOPA\LEVODOPA
     Indication: PARKINSON^S DISEASE
     Dosage: ROUTE: PEG; CONTINUAL DOSE: 5.3 ML/HOUR, DURING 16 HOURS PER DAY
     Route: 050
     Dates: start: 20090315, end: 20090927
  8. DUODOPA [Suspect]
     Active Substance: CARBIDOPA\LEVODOPA
     Dosage: ROUTE: PEG; CONTINUAL DOSE: 5.4 ML/HOUR, DURING 16 HOURS PER DAY
     Route: 050

REACTIONS (3)
  - Muscle rigidity [Unknown]
  - Drowning [Fatal]
  - Device dislocation [Unknown]

NARRATIVE: CASE EVENT DATE: 20090927
